FAERS Safety Report 14820694 (Version 5)
Quarter: 2018Q3

REPORT INFORMATION
  Report Type: Spontaneous
  Country: CA (occurrence: CA)
  Receive Date: 20180427
  Receipt Date: 20180821
  Transmission Date: 20181010
  Serious: Yes (Other)
  Sender: FDA-Public Use
  Company Number: CA-CELLTRION INC.-2017CA017426

PATIENT

DRUGS (9)
  1. SULFASALAZINE. [Concomitant]
     Active Substance: SULFASALAZINE
     Dosage: UNK
     Dates: start: 2007
  2. DIPHENHYDRAMINE. [Concomitant]
     Active Substance: DIPHENHYDRAMINE
  3. INFLECTRA [Suspect]
     Active Substance: INFLIXIMAB-DYYB
     Dosage: 460 MG CYCLIC (EVERY 8 WEEKS)
     Route: 042
     Dates: start: 20180808
  4. INFLECTRA [Suspect]
     Active Substance: INFLIXIMAB-DYYB
     Indication: COLITIS ULCERATIVE
     Dosage: 431 MG, CYCLIC AT 0,2,6 WEEKS, THEN EVERY 8 WEEKS
     Route: 042
     Dates: start: 20171114, end: 20180220
  5. INFLECTRA [Suspect]
     Active Substance: INFLIXIMAB-DYYB
     Dosage: 460 MG CYCLIC (EVERY 8 WEEKS)
     Route: 042
     Dates: start: 20180613
  6. BETNESOL                           /00008502/ [Concomitant]
     Active Substance: BETAMETHASONE SODIUM PHOSPHATE
     Dosage: UNK
     Dates: start: 2016
  7. ACETAMINOPHEN. [Concomitant]
     Active Substance: ACETAMINOPHEN
  8. HYDROCORTISONE. [Concomitant]
     Active Substance: HYDROCORTISONE
  9. INFLECTRA [Suspect]
     Active Substance: INFLIXIMAB-DYYB
     Dosage: 431 MG/ Q 0,2,6 WEKS,THEN EVERY 8 WEEKS;
     Route: 042
     Dates: start: 20180418

REACTIONS (10)
  - Haematochezia [Not Recovered/Not Resolved]
  - Blood pressure fluctuation [Unknown]
  - Nasopharyngitis [Recovering/Resolving]
  - Frequent bowel movements [Unknown]
  - Paraesthesia [Unknown]
  - Nausea [Unknown]
  - Condition aggravated [Unknown]
  - Influenza [Unknown]
  - Malaise [Unknown]
  - Drug effect incomplete [Unknown]

NARRATIVE: CASE EVENT DATE: 2017
